FAERS Safety Report 8130595-6 (Version None)
Quarter: 2012Q1

REPORT INFORMATION
  Report Type: 
  Country: None (occurrence: None)
  Receive Date: 20120212
  Receipt Date: 20120202
  Transmission Date: 20120608
  Serious: Yes (Hospitalization, Other)
  Sender: FDA-Public Use
  Company Number: IT-BRISTOL-MYERS SQUIBB COMPANY-16377541

PATIENT
  Age: 71 Year
  Sex: Female

DRUGS (4)
  1. TICLOPIDINE HCL [Concomitant]
     Route: 048
     Dates: start: 20070112, end: 20120110
  2. ENALAPRIL MALEATE [Concomitant]
     Route: 048
     Dates: start: 20051001, end: 20120110
  3. BISOPROLOL FUMARATE [Concomitant]
     Route: 048
     Dates: start: 20051001, end: 20120110
  4. SPRYCEL [Suspect]
     Indication: CHRONIC MYELOID LEUKAEMIA
     Dosage: INTER ON 10JAN12
     Dates: start: 20081020

REACTIONS (2)
  - ACUTE MYOCARDIAL INFARCTION [None]
  - ARTERIOSCLEROSIS CORONARY ARTERY [None]
